FAERS Safety Report 12156733 (Version 2)
Quarter: 2017Q2

REPORT INFORMATION
  Report Type: Spontaneous
  Country: US (occurrence: US)
  Receive Date: 20160307
  Receipt Date: 20170531
  Transmission Date: 20170829
  Serious: No
  Sender: FDA-Public Use
  Company Number: US-009507513-1603USA002746

PATIENT
  Sex: Female
  Weight: 113.3 kg

DRUGS (1)
  1. SINGULAIR [Suspect]
     Active Substance: MONTELUKAST SODIUM
     Indication: HYPERSENSITIVITY
     Dosage: UNK UNK, QAM
     Route: 048
     Dates: start: 2003

REACTIONS (1)
  - Drug ineffective [Unknown]
